FAERS Safety Report 17102022 (Version 1)
Quarter: 2019Q4

REPORT INFORMATION
  Report Type: Spontaneous
  Country: GB (occurrence: GB)
  Receive Date: 20191202
  Receipt Date: 20191202
  Transmission Date: 20200122
  Serious: Yes (Hospitalization)
  Sender: FDA-Public Use
  Company Number: GB-ANIPHARMA-2019-UK-000191

PATIENT
  Age: 3 Day
  Sex: Female
  Weight: 3.03 kg

DRUGS (1)
  1. FLUOXETINE HYDROCHLORIDE (NON-SPECIFIC) [Suspect]
     Active Substance: FLUOXETINE HYDROCHLORIDE
     Indication: PRODUCT USED FOR UNKNOWN INDICATION
     Dosage: 20 MG DAILY
     Route: 015

REACTIONS (2)
  - Hypoventilation neonatal [Recovered/Resolved]
  - Foetal exposure during pregnancy [Recovered/Resolved]
